FAERS Safety Report 6348096-4 (Version None)
Quarter: 2009Q3

REPORT INFORMATION
  Report Type: 
  Country: None (occurrence: None)
  Receive Date: 20090904
  Receipt Date: 20090824
  Transmission Date: 20100115
  Serious: Yes (Death, Hospitalization)
  Sender: FDA-Public Use
  Company Number: B0590652A

PATIENT
  Age: 71 Year
  Sex: Male

DRUGS (1)
  1. DIGOXIN [Suspect]
     Indication: ARRHYTHMIA

REACTIONS (7)
  - CARDIAC DISORDER [None]
  - MULTI-ORGAN FAILURE [None]
  - NO THERAPEUTIC RESPONSE [None]
  - RENAL FAILURE ACUTE [None]
  - SEPTIC SHOCK [None]
  - THERAPEUTIC AGENT TOXICITY [None]
  - VENTRICULAR ARRHYTHMIA [None]
